FAERS Safety Report 16781908 (Version 1)
Quarter: 2019Q3

REPORT INFORMATION
  Report Type: Spontaneous
  Country: US (occurrence: US)
  Receive Date: 20190906
  Receipt Date: 20190906
  Transmission Date: 20191005
  Serious: No
  Sender: FDA-Public Use
  Company Number: US-BAYER-2019-163926

PATIENT
  Age: 77 Year
  Sex: Female

DRUGS (1)
  1. ADEMPAS [Suspect]
     Active Substance: RIOCIGUAT
     Indication: HYPERTENSION
     Dosage: 1 MG, TID
     Dates: start: 201908

REACTIONS (2)
  - Rash [Not Recovered/Not Resolved]
  - Limb mass [Not Recovered/Not Resolved]

NARRATIVE: CASE EVENT DATE: 20190905
